FAERS Safety Report 21441406 (Version 2)
Quarter: 2022Q4

REPORT INFORMATION
  Report Type: Report from Study
  Country: IT (occurrence: IT)
  Receive Date: 20221011
  Receipt Date: 20221014
  Transmission Date: 20230113
  Serious: Yes (Death)
  Sender: FDA-Public Use
  Company Number: None

PATIENT
  Age: 20 Year
  Sex: Male
  Weight: 71 kg

DRUGS (5)
  1. DOXORUBICIN HYDROCHLORIDE [Suspect]
     Active Substance: DOXORUBICIN HYDROCHLORIDE
     Indication: Hodgkin^s disease
     Dosage: 71.6 MG, TWO-HOUR INTRAVENOUS INFUSION
     Route: 042
     Dates: start: 20220909, end: 20220909
  2. VINCRISTINE [Suspect]
     Active Substance: VINCRISTINE
     Indication: Hodgkin^s disease
     Dosage: 2 MG; 1ST DOSE
     Route: 042
     Dates: start: 20220909, end: 20220909
  3. VINCRISTINE [Suspect]
     Active Substance: VINCRISTINE
     Dosage: 2 MG; 2ND DOSE
     Route: 042
     Dates: start: 20220916, end: 20220916
  4. ETOPOSIDE [Suspect]
     Active Substance: ETOPOSIDE
     Indication: Hodgkin^s disease
     Dosage: 224 MG WO-HOUR INTRAVENOUS INFUSION
     Route: 042
     Dates: start: 20220909, end: 20220913
  5. PREDNISONE [Suspect]
     Active Substance: PREDNISONE
     Dosage: 60 MG/M2 IN THREE ORAL DOSES PER DAY
     Route: 048
     Dates: start: 20220909, end: 20220922

REACTIONS (4)
  - Pulmonary alveolar haemorrhage [Fatal]
  - Multiple organ dysfunction syndrome [Fatal]
  - Sepsis [Fatal]
  - Pulmonary embolism [Fatal]

NARRATIVE: CASE EVENT DATE: 20220922
